FAERS Safety Report 19317960 (Version 2)
Quarter: 2021Q2

REPORT INFORMATION
  Report Type: Report from Study
  Country: None (occurrence: US)
  Receive Date: 20210528
  Receipt Date: 20210613
  Transmission Date: 20210717
  Serious: Yes (Hospitalization, Other)
  Sender: FDA-Public Use
  Company Number: US-ABBVIE-21K-163-3908972-00

PATIENT
  Sex: Female

DRUGS (2)
  1. IMBRUVICA [Suspect]
     Active Substance: IBRUTINIB
     Indication: CHRONIC LYMPHOCYTIC LEUKAEMIA
     Route: 048
     Dates: start: 20210501, end: 20210515
  2. IMBRUVICA [Suspect]
     Active Substance: IBRUTINIB
     Route: 048

REACTIONS (18)
  - Arthralgia [Unknown]
  - Insomnia [Unknown]
  - Vomiting [Recovering/Resolving]
  - Abdominal discomfort [Recovering/Resolving]
  - Headache [Recovering/Resolving]
  - Loss of consciousness [Unknown]
  - Unevaluable event [Unknown]
  - Palpitations [Recovering/Resolving]
  - Dizziness [Unknown]
  - Pain [Unknown]
  - Diarrhoea [Recovering/Resolving]
  - Abdominal pain [Unknown]
  - Abdominal distension [Unknown]
  - Gastrointestinal pain [Unknown]
  - Nausea [Recovering/Resolving]
  - Abdominal pain upper [Recovering/Resolving]
  - Bone pain [Unknown]
  - Pyrexia [Unknown]

NARRATIVE: CASE EVENT DATE: 2021
